FAERS Safety Report 7060780-6 (Version None)
Quarter: 2010Q4

REPORT INFORMATION
  Report Type: 
  Country: None (occurrence: None)
  Receive Date: 20101025
  Receipt Date: 20101018
  Transmission Date: 20110411
  Serious: Yes (Other)
  Sender: FDA-Public Use
  Company Number: US-SANOFI-AVENTIS-2010SA062483

PATIENT
  Age: 72 Year
  Sex: Female

DRUGS (2)
  1. OPTICLICK [Suspect]
     Route: 058
  2. APIDRA [Suspect]
     Dosage: DOSE:12 UNIT(S)
     Route: 058

REACTIONS (1)
  - HYPOGLYCAEMIA [None]
